FAERS Safety Report 8584496-X (Version None)
Quarter: 2012Q3

REPORT INFORMATION
  Report Type: 
  Country: None (occurrence: None)
  Receive Date: 20120810
  Receipt Date: 20120725
  Transmission Date: 20120928
  Serious: No
  Sender: FDA-Public Use
  Company Number: US-PFIZER INC-2012192097

PATIENT
  Age: 69 Year
  Sex: Female
  Weight: 54.422 kg

DRUGS (2)
  1. VORICONAZOLE [Suspect]
     Dosage: UNK
     Route: 031
  2. VORICONAZOLE [Suspect]
     Route: 047

REACTIONS (5)
  - PAIN IN EXTREMITY [None]
  - BACK PAIN [None]
  - DRUG ADMINISTRATION ERROR [None]
  - ACTIVITIES OF DAILY LIVING IMPAIRED [None]
  - MOBILITY DECREASED [None]
